FAERS Safety Report 9452571 (Version 5)
Quarter: 2014Q4

REPORT INFORMATION
  Report Type: Spontaneous
  Country: US (occurrence: US)
  Receive Date: 20130812
  Receipt Date: 20141119
  Transmission Date: 20150529
  Serious: Yes (Other)
  Sender: FDA-Public Use
  Company Number: US-PFIZER INC-2013232098

PATIENT
  Sex: Female

DRUGS (1)
  1. LYRICA [Suspect]
     Active Substance: PREGABALIN
     Dosage: 150 MG, UNK

REACTIONS (15)
  - Fibromyalgia [Unknown]
  - Pain in extremity [Unknown]
  - Pain [Unknown]
  - Impaired driving ability [Unknown]
  - Drug withdrawal syndrome [Unknown]
  - Feeling abnormal [Unknown]
  - Insomnia [Unknown]
  - Pyrexia [Unknown]
  - Irritability [Unknown]
  - Depression [Unknown]
  - Gait disturbance [Unknown]
  - Suicidal ideation [Unknown]
  - Psychotic disorder [Unknown]
  - Anger [Unknown]
  - Osteoporosis [Unknown]
